FAERS Safety Report 7095172-7 (Version None)
Quarter: 2010Q4

REPORT INFORMATION
  Report Type: 
  Country: None (occurrence: None)
  Receive Date: 20101025
  Receipt Date: 20101020
  Transmission Date: 20110411
  Serious: Yes (Other)
  Sender: FDA-Public Use
  Company Number: 2010026490

PATIENT
  Sex: Female
  Weight: 68.0396 kg

DRUGS (4)
  1. VIVAGLOBIN [Suspect]
     Indication: IMMUNODEFICIENCY COMMON VARIABLE
     Dosage: SEE IMAGE
     Route: 058
     Dates: start: 20100916, end: 20100916
  2. VIVAGLOBIN [Suspect]
     Indication: IMMUNODEFICIENCY COMMON VARIABLE
     Dosage: SEE IMAGE
     Route: 058
     Dates: start: 20100920, end: 20100920
  3. ATENOLOL [Concomitant]
  4. PAXIL [Concomitant]

REACTIONS (6)
  - ASCITES [None]
  - BLOOD PRESSURE INCREASED [None]
  - FLUID RETENTION [None]
  - INFUSION RELATED REACTION [None]
  - WAIST CIRCUMFERENCE INCREASED [None]
  - WEIGHT INCREASED [None]
